FAERS Safety Report 21473599 (Version 1)
Quarter: 2022Q4

REPORT INFORMATION
  Report Type: Spontaneous
  Country: US (occurrence: US)
  Receive Date: 20221018
  Receipt Date: 20221018
  Transmission Date: 20230112
  Serious: No
  Sender: FDA-Public Use
  Company Number: US-009507513-2210USA003215

PATIENT
  Age: 43 Year
  Sex: Male

DRUGS (2)
  1. NOXAFIL [Suspect]
     Active Substance: POSACONAZOLE
     Indication: Pulmonary mucormycosis
     Dosage: LOADING 300 MG DELAYED-RELEASE TABLET TWICE A DAY
     Route: 048
  2. NOXAFIL [Suspect]
     Active Substance: POSACONAZOLE
     Dosage: 300 MG DOSING OF DELAYED-RELEASE POSACONAZOLE TABLETS DAILY

REACTIONS (1)
  - Product use in unapproved indication [Unknown]
